FAERS Safety Report 9531375 (Version 2)
Quarter: 2013Q4

REPORT INFORMATION
  Report Type: Report from Study
  Country: CA (occurrence: CA)
  Receive Date: 20130918
  Receipt Date: 20131001
  Transmission Date: 20140711
  Serious: Yes (Life-Threatening, Hospitalization)
  Sender: FDA-Public Use
  Company Number: CA-US-EMD SERONO, INC.-7237653

PATIENT
  Age: 63 Year
  Sex: Male

DRUGS (2)
  1. REBIF [Suspect]
     Indication: RELAPSING-REMITTING MULTIPLE SCLEROSIS
     Route: 058
     Dates: start: 20110612, end: 20111129
  2. REBIF [Suspect]
     Route: 058
     Dates: start: 20120713

REACTIONS (3)
  - Myocardial infarction [Recovering/Resolving]
  - Paraesthesia [Unknown]
  - Fatigue [Unknown]
